FAERS Safety Report 4663641-2 (Version None)
Quarter: 2005Q2

REPORT INFORMATION
  Report Type: 
  Country: None (occurrence: None)
  Receive Date: 20050517
  Receipt Date: 20050512
  Transmission Date: 20051028
  Serious: Yes (Hospitalization)
  Sender: FDA-Public Use
  Company Number: PHNR2005AU00857

PATIENT
  Age: 34 Year
  Sex: Male

DRUGS (4)
  1. CLOZARIL [Suspect]
     Dosage: 0 - 175 MG/DAY
     Dates: start: 20050416, end: 20050510
  2. LITHIUM [Concomitant]
  3. VALPROATE SODIUM [Concomitant]
  4. FLUVOXAMINE MALEATE [Concomitant]
     Dosage: IN REDUCING DOSE (NOT SPECIFIED)

REACTIONS (11)
  - BLOOD CREATINE PHOSPHOKINASE INCREASED [None]
  - BLOOD CREATININE INCREASED [None]
  - DEHYDRATION [None]
  - DIARRHOEA [None]
  - GASTROENTERITIS [None]
  - HYPERHIDROSIS [None]
  - MYOGLOBIN URINE PRESENT [None]
  - NEUROLEPTIC MALIGNANT SYNDROME [None]
  - RENAL FAILURE [None]
  - TREMOR [None]
  - VOMITING [None]
